FAERS Safety Report 6903121-4 (Version None)
Quarter: 2010Q3

REPORT INFORMATION
  Report Type: 
  Country: None (occurrence: None)
  Receive Date: 20100803
  Receipt Date: 20080715
  Transmission Date: 20110219
  Serious: No
  Sender: FDA-Public Use
  Company Number: US-PFIZER INC-2008056879

PATIENT
  Sex: Female
  Weight: 75 kg

DRUGS (7)
  1. LYRICA [Suspect]
     Indication: FIBROMYALGIA
     Route: 048
     Dates: start: 20080624, end: 20080704
  2. LYRICA [Suspect]
     Indication: BURSITIS
  3. MOBIC [Concomitant]
  4. K-DUR [Concomitant]
  5. NEXIUM [Concomitant]
  6. ALL OTHER THERAPEUTIC PRODUCTS [Concomitant]
  7. HYDROCHLOROTHIAZIDE [Concomitant]

REACTIONS (3)
  - MALAISE [None]
  - MYALGIA [None]
  - PYREXIA [None]
